FAERS Safety Report 13954218 (Version 3)
Quarter: 2017Q4

REPORT INFORMATION
  Report Type: Report from Study
  Country: TR (occurrence: TR)
  Receive Date: 20170911
  Receipt Date: 20171110
  Transmission Date: 20180320
  Serious: Yes (Death, Life-Threatening)
  Sender: FDA-Public Use
  Company Number: TR-AMGEN-TURSP2017137020

PATIENT
  Age: 16 Year

DRUGS (2)
  1. BLINATUMOMAB [Suspect]
     Active Substance: BLINATUMOMAB
     Indication: LEUKAEMIA RECURRENT
     Dosage: 9 MUG, QD
     Route: 042
     Dates: start: 20170810, end: 20170813
  2. BLINATUMOMAB [Suspect]
     Active Substance: BLINATUMOMAB
     Indication: PRECURSOR B-LYMPHOBLASTIC LYMPHOMA REFRACTORY
     Dosage: 28 MUG, CONTINUING
     Route: 042
     Dates: start: 2017

REACTIONS (5)
  - Pleural effusion [Recovering/Resolving]
  - Death [Fatal]
  - Hyperhidrosis [Recovered/Resolved]
  - Hypertension [Recovered/Resolved]
  - Hyponatraemia [Recovered/Resolved]

NARRATIVE: CASE EVENT DATE: 2017
